FAERS Safety Report 16085957 (Version 2)
Quarter: 2025Q4

REPORT INFORMATION
  Report Type: Spontaneous
  Country: EU (occurrence: EU)
  Receive Date: 20190318
  Receipt Date: 20251227
  Transmission Date: 20260118
  Serious: Yes (Hospitalization, Disabling, Other)
  Sender: TEVA
  Company Number: None

PATIENT
  Age: 22 Year
  Sex: Female

DRUGS (1)
  1. PREDNISOLONE [Suspect]
     Active Substance: PREDNISOLONE
     Indication: Pneumonia mycoplasmal
     Route: 065
     Dates: start: 20081120, end: 20090330

REACTIONS (6)
  - Osteonecrosis [Not Recovered/Not Resolved]
  - Arthralgia [Recovering/Resolving]
  - Groin pain [Recovering/Resolving]
  - Hip arthroplasty [Recovered/Resolved]
  - Arthralgia [Not Recovered/Not Resolved]
  - Arthralgia [Not Recovered/Not Resolved]

NARRATIVE: CASE EVENT DATE: 20121116
